FAERS Safety Report 9842357 (Version 4)
Quarter: 2014Q2

REPORT INFORMATION
  Report Type: Spontaneous
  Country: US (occurrence: US)
  Receive Date: 20140124
  Receipt Date: 20140408
  Transmission Date: 20141212
  Serious: Yes (Hospitalization)
  Sender: FDA-Public Use
  Company Number: US-GILEAD-2014-0092774

PATIENT
  Sex: Female

DRUGS (16)
  1. TYVASO [Concomitant]
     Indication: PULMONARY ARTERIAL HYPERTENSION
     Dates: start: 20140108
  2. ADCIRCA [Concomitant]
     Indication: PULMONARY ARTERIAL HYPERTENSION
     Dates: start: 20131129
  3. WARFARIN [Concomitant]
  4. SPIRONOLACTONE [Concomitant]
  5. METHOTREXATE [Concomitant]
  6. BUMETANIDE [Concomitant]
  7. PANTOPRAZOLE [Concomitant]
  8. PREDNISONE [Concomitant]
  9. POTASSIUM [Concomitant]
  10. FOLIC ACID [Concomitant]
  11. HYDROCODONE [Concomitant]
  12. LORAZEPAM [Concomitant]
  13. CITALOPRAM HYDROBROMIDE [Concomitant]
  14. DICYCLOMINE HCL [Concomitant]
  15. LETAIRIS [Suspect]
     Indication: PULMONARY ARTERIAL HYPERTENSION
     Dosage: 5 MG, QD
     Route: 048
     Dates: start: 20110502
  16. LETAIRIS [Suspect]
     Indication: SYSTEMIC SCLEROSIS

REACTIONS (2)
  - Dyspnoea [Unknown]
  - Oxygen saturation decreased [Unknown]
